FAERS Safety Report 15658929 (Version 1)
Quarter: 2018Q4

REPORT INFORMATION
  Report Type: Report from Study
  Country: None (occurrence: BR)
  Receive Date: 20181126
  Receipt Date: 20181126
  Transmission Date: 20190205
  Serious: Yes (Disabling, Other)
  Sender: FDA-Public Use
  Company Number: BR-ABBVIE-18K-020-2563931-00

PATIENT
  Age: 61 Year
  Sex: Female
  Weight: 71 kg

DRUGS (5)
  1. VARICOSS [Concomitant]
     Indication: CARDIOVASCULAR DISORDER
  2. DIPYRONE [Suspect]
     Active Substance: DIPYRONE
     Indication: PAIN
     Route: 065
  3. VICOG [Concomitant]
     Active Substance: VINPOCETINE
     Indication: MEMORY IMPAIRMENT
  4. HUMIRA [Suspect]
     Active Substance: ADALIMUMAB
     Indication: CROHN^S DISEASE
     Route: 058
     Dates: start: 20170310, end: 201809
  5. DORALGINA [Concomitant]
     Indication: HEADACHE

REACTIONS (13)
  - Hypophagia [Recovered/Resolved]
  - Tuberculosis [Unknown]
  - Weight increased [Not Recovered/Not Resolved]
  - Skin discolouration [Recovering/Resolving]
  - Cartilage atrophy [Recovering/Resolving]
  - Pain [Recovering/Resolving]
  - Weight decreased [Recovered/Resolved]
  - Blister [Recovered/Resolved]
  - Pruritus allergic [Recovering/Resolving]
  - Pyrexia [Recovered/Resolved]
  - Joint swelling [Recovering/Resolving]
  - Gait inability [Recovering/Resolving]
  - Depression [Not Recovered/Not Resolved]

NARRATIVE: CASE EVENT DATE: 201705
